FAERS Safety Report 5038690-5 (Version None)
Quarter: 2006Q2

REPORT INFORMATION
  Report Type: 
  Country: None (occurrence: None)
  Receive Date: 20060629
  Receipt Date: 20060309
  Transmission Date: 20061013
  Serious: No
  Sender: FDA-Public Use
  Company Number: US-BRISTOL-MYERS SQUIBB COMPANY-13309018

PATIENT
  Age: 33 Year
  Sex: Male
  Weight: 79 kg

DRUGS (4)
  1. REYATAZ [Suspect]
     Dates: start: 20050101
  2. COMBIVIR [Concomitant]
  3. WELLBUTRIN [Concomitant]
  4. FLONASE [Concomitant]

REACTIONS (1)
  - MIGRAINE [None]
